FAERS Safety Report 9278710 (Version 2)
Quarter: 2013Q3

REPORT INFORMATION
  Report Type: Report from Study
  Country: CA (occurrence: CA)
  Receive Date: 20130508
  Receipt Date: 20130909
  Transmission Date: 20140515
  Serious: Yes (Other)
  Sender: FDA-Public Use
  Company Number: CA-ABBOTT-13P-028-1085035-00

PATIENT
  Age: 84 Year
  Sex: Male
  Weight: 90.8 kg

DRUGS (4)
  1. LUPRON DEPOT [Suspect]
     Indication: PROSTATE CANCER
     Dosage: 30 MG - 4 MONTH DEPOT
     Route: 030
     Dates: start: 20130115
  2. LYRICA [Concomitant]
     Indication: PRODUCT USED FOR UNKNOWN INDICATION
     Dosage: 4 TABLETS DAILY
  3. CORTISONE [Concomitant]
     Indication: HERPES ZOSTER
  4. CORTISONE [Concomitant]
     Indication: PAIN

REACTIONS (3)
  - Bladder catheterisation [Not Recovered/Not Resolved]
  - Hot flush [Not Recovered/Not Resolved]
  - Arthralgia [Not Recovered/Not Resolved]
